FAERS Safety Report 7490046-1 (Version None)
Quarter: 2011Q2

REPORT INFORMATION
  Report Type: 
  Country: None (occurrence: None)
  Receive Date: 20110512
  Receipt Date: 20110427
  Transmission Date: 20111010
  Serious: Yes (Disabling)
  Sender: FDA-Public Use
  Company Number: AUR-APL-2011-01487

PATIENT
  Age: 72 Year
  Sex: Female

DRUGS (2)
  1. MIRTAZAPINE [Suspect]
     Indication: DEPRESSED MOOD
     Dosage: 45MG-ORAL
     Route: 048
     Dates: start: 20100906, end: 20101007
  2. OLANZAPINE [Concomitant]

REACTIONS (2)
  - COMPULSIVE SEXUAL BEHAVIOUR [None]
  - EXCESSIVE MASTURBATION [None]
